FAERS Safety Report 4907184-7 (Version None)
Quarter: 2006Q1

REPORT INFORMATION
  Report Type: 
  Country: None (occurrence: None)
  Receive Date: 20060207
  Receipt Date: 20060117
  Transmission Date: 20060701
  Serious: Yes (Hospitalization)
  Sender: FDA-Public Use
  Company Number: US_0509122553

PATIENT
  Age: 39 Year
  Sex: Female
  Weight: 91.4 kg

DRUGS (11)
  1. ZYPREXA [Suspect]
     Dosage: ORAL
     Dates: start: 20010101, end: 20050701
  2. ZYPREXA [Suspect]
     Dosage: 10 MG, EACH EVENING
     Dates: start: 19990222
  3. RISPERDAL [Concomitant]
  4. DEPAKOTE [Concomitant]
  5. REMERON [Concomitant]
  6. LIPITOR [Concomitant]
  7. WELLBATRIN (BUPROPION HYDROCHLORIDE) [Concomitant]
  8. NEURONTIN [Concomitant]
  9. ALBUTEROL [Concomitant]
  10. CELEXA [Concomitant]
  11. ZOLOFT [Concomitant]

REACTIONS (23)
  - BLOOD CHOLESTEROL INCREASED [None]
  - BLOOD GLUCOSE DECREASED [None]
  - BLOOD GLUCOSE INCREASED [None]
  - BLOOD SODIUM DECREASED [None]
  - BLOOD TRIGLYCERIDES INCREASED [None]
  - COLITIS [None]
  - CONDITION AGGRAVATED [None]
  - DIABETES MELLITUS [None]
  - DIABETIC KETOACIDOSIS [None]
  - DIABETIC NEUROPATHY [None]
  - DIVERTICULITIS [None]
  - DYSPNOEA [None]
  - GAMMA-GLUTAMYLTRANSFERASE INCREASED [None]
  - HEADACHE [None]
  - HEPATIC STEATOSIS [None]
  - HIGH DENSITY LIPOPROTEIN DECREASED [None]
  - LEUKOCYTOSIS [None]
  - LOW DENSITY LIPOPROTEIN INCREASED [None]
  - NAUSEA [None]
  - POLLAKIURIA [None]
  - URETHRAL STENOSIS [None]
  - VISION BLURRED [None]
  - WEIGHT INCREASED [None]
